FAERS Safety Report 16859101 (Version 3)
Quarter: 2020Q3

REPORT INFORMATION
  Report Type: Other
  Country: US (occurrence: US)
  Receive Date: 20190926
  Receipt Date: 20200925
  Transmission Date: 20201102
  Serious: Yes (Hospitalization)
  Sender: FDA-Public Use
  Company Number: US-VERASTEM-2019-00125

PATIENT

DRUGS (1)
  1. COPIKTRA [Suspect]
     Active Substance: DUVELISIB
     Indication: B-CELL LYMPHOMA
     Dosage: 25 MG, BID
     Route: 048
     Dates: start: 20190723, end: 20200420

REACTIONS (8)
  - Pruritus [Recovered/Resolved]
  - Vomiting [Recovering/Resolving]
  - Pain in extremity [Recovered/Resolved]
  - Lethargy [Not Recovered/Not Resolved]
  - Diarrhoea [Recovering/Resolving]
  - Colitis [Unknown]
  - Malignant neoplasm progression [Not Recovered/Not Resolved]
  - Weight decreased [Recovering/Resolving]

NARRATIVE: CASE EVENT DATE: 20190719
